FAERS Safety Report 5632819-3 (Version None)
Quarter: 2008Q1

REPORT INFORMATION
  Report Type: 
  Country: None (occurrence: None)
  Receive Date: 20080221
  Receipt Date: 20070705
  Transmission Date: 20080703
  Serious: No
  Sender: FDA-Public Use
  Company Number: A0661901A

PATIENT
  Age: 82 Year
  Sex: Female

DRUGS (3)
  1. ALKERAN [Suspect]
     Route: 065
     Dates: start: 20070201
  2. NO CONCURRENT MEDICATION [Concomitant]
  3. REVLIMID [Concomitant]
     Route: 065

REACTIONS (1)
  - RASH [None]
